FAERS Safety Report 14983695 (Version 2)
Quarter: 2018Q2

REPORT INFORMATION
  Report Type: Spontaneous
  Country: US (occurrence: US)
  Receive Date: 20180607
  Receipt Date: 20180622
  Transmission Date: 20180711
  Serious: Yes (Other)
  Sender: FDA-Public Use
  Company Number: US-LPDUSPRD-20180973

PATIENT
  Age: 49 Year
  Sex: Female

DRUGS (14)
  1. INJECTAFER [Suspect]
     Active Substance: FERRIC CARBOXYMALTOSE
     Dosage: 750 MG IN 0.9 NS 250 CC
     Route: 042
     Dates: start: 20180522, end: 20180522
  2. PROAIR HFA [Concomitant]
     Active Substance: ALBUTEROL SULFATE
     Dosage: UNKNOWN
     Route: 065
  3. VALACYCLOVIR [Concomitant]
     Active Substance: VALACYCLOVIR HYDROCHLORIDE
     Dosage: 1 GRAM TWICE DAILY
     Route: 048
  4. ALPRAZOLAM. [Concomitant]
     Active Substance: ALPRAZOLAM
     Dosage: 0.25 MG EVERY 8 HOURS
     Route: 048
  5. FERROUS SULFATE. [Concomitant]
     Active Substance: FERROUS SULFATE
     Dosage: 325 MG THREE TIMES DAILY
     Route: 048
  6. MEDROL [Concomitant]
     Active Substance: METHYLPREDNISOLONE
     Dosage: 1 PACKAGE PER DIRECTIONS
     Route: 048
  7. BUPROPION IR [Concomitant]
     Dosage: 300 MG DAILY
     Route: 048
  8. DIPHENHYDRAMINE. [Concomitant]
     Active Substance: DIPHENHYDRAMINE
     Dosage: 50 MG DAILY
     Route: 048
  9. PANTOPRAZOLE SODIUM. [Concomitant]
     Active Substance: PANTOPRAZOLE SODIUM
     Dosage: 40 MG DAILY
     Route: 048
  10. QVAR [Concomitant]
     Active Substance: BECLOMETHASONE DIPROPIONATE
     Dosage: 1 PUFF TWICE A DAY
     Route: 065
  11. ALBUTEROL. [Concomitant]
     Active Substance: ALBUTEROL
     Dosage: NEBULIZED AS NEEDED
     Route: 055
  12. AMLODIPINE [Concomitant]
     Active Substance: AMLODIPINE BESYLATE
     Dosage: 5 MG DAILY
     Route: 048
  13. DEPO-PROVERA [Concomitant]
     Active Substance: MEDROXYPROGESTERONE ACETATE
     Dosage: UNKNOWN
     Route: 030
  14. ADVAIR HFA [Concomitant]
     Active Substance: FLUTICASONE PROPIONATE\SALMETEROL XINAFOATE
     Dosage: UNKNOWN
     Route: 065

REACTIONS (3)
  - Swelling face [Unknown]
  - Erythema [Unknown]
  - Facial pain [Unknown]

NARRATIVE: CASE EVENT DATE: 20180522
